FAERS Safety Report 6899221-8 (Version None)
Quarter: 2010Q3

REPORT INFORMATION
  Report Type: 
  Country: None (occurrence: None)
  Receive Date: 20100802
  Receipt Date: 20100720
  Transmission Date: 20110219
  Serious: Yes (Hospitalization)
  Sender: FDA-Public Use
  Company Number: JP-MYLANLABS-2010S1012899

PATIENT
  Age: 66 Year
  Sex: Male

DRUGS (4)
  1. PAROXETINE HCL [Suspect]
     Indication: MAJOR DEPRESSION
     Route: 065
     Dates: end: 20070801
  2. PAROXETINE HCL [Suspect]
     Route: 065
     Dates: end: 20070801
  3. CLOMIPRAMINE [Suspect]
     Indication: MAJOR DEPRESSION
     Route: 065
     Dates: start: 20070724, end: 20070812
  4. SULPIRIDE [Concomitant]
     Indication: MAJOR DEPRESSION
     Route: 065
     Dates: end: 20070601

REACTIONS (2)
  - CATATONIA [None]
  - SEROTONIN SYNDROME [None]
